FAERS Safety Report 5692762-0 (Version None)
Quarter: 2008Q2

REPORT INFORMATION
  Report Type: 
  Country: None (occurrence: None)
  Receive Date: 20080401
  Receipt Date: 20080319
  Transmission Date: 20081010
  Serious: Yes (Other)
  Sender: FDA-Public Use
  Company Number: 430034M07USA

PATIENT
  Age: 60 Year
  Sex: Female
  Weight: 61.2356 kg

DRUGS (16)
  1. NOVANTRONE [Suspect]
     Indication: MULTIPLE SCLEROSIS
     Dosage: SEE IMAGE
     Route: 042
     Dates: start: 20050214, end: 20050214
  2. NOVANTRONE [Suspect]
     Indication: MULTIPLE SCLEROSIS
     Dosage: SEE IMAGE
     Route: 042
     Dates: start: 20050509, end: 20050509
  3. NOVANTRONE [Suspect]
     Indication: MULTIPLE SCLEROSIS
     Dosage: SEE IMAGE
     Route: 042
     Dates: start: 20050813, end: 20050813
  4. NOVANTRONE [Suspect]
     Indication: MULTIPLE SCLEROSIS
     Dosage: SEE IMAGE
     Route: 042
     Dates: start: 20060511, end: 20060511
  5. NOVANTRONE [Suspect]
     Indication: MULTIPLE SCLEROSIS
     Dosage: SEE IMAGE
     Route: 042
     Dates: start: 20060803, end: 20060803
  6. NOVANTRONE [Suspect]
     Indication: MULTIPLE SCLEROSIS
     Dosage: SEE IMAGE
     Route: 042
     Dates: start: 20061109, end: 20061109
  7. NOVANTRONE [Suspect]
     Indication: MULTIPLE SCLEROSIS
     Dosage: SEE IMAGE
     Route: 042
     Dates: start: 20070208, end: 20070208
  8. NOVANTRONE [Suspect]
     Indication: MULTIPLE SCLEROSIS
     Dosage: SEE IMAGE
     Route: 042
     Dates: start: 20070612, end: 20070612
  9. SINEMET [Suspect]
  10. MIRAPEX [Suspect]
  11. BECLOFEN (BACLOFEN) [Concomitant]
  12. BETASERON [Concomitant]
  13. TETRACYCLINE (TETRACYCLINE /00001701/) [Concomitant]
  14. CLONAZEPAM [Concomitant]
  15. FOSAMAX [Concomitant]
  16. TIZANIDINE HCL [Concomitant]

REACTIONS (2)
  - AORTIC VALVE INCOMPETENCE [None]
  - ATRIAL FIBRILLATION [None]
